FAERS Safety Report 12865225 (Version 1)
Quarter: 2016Q4

REPORT INFORMATION
  Report Type: Spontaneous
  Country: US (occurrence: US)
  Receive Date: 20161020
  Receipt Date: 20161020
  Transmission Date: 20170207
  Serious: Yes (Other)
  Sender: FDA-Public Use
  Company Number: None

PATIENT
  Age: 78 Year
  Sex: Female
  Weight: 72.58 kg

DRUGS (10)
  1. VITAMIN D3 [Concomitant]
     Active Substance: CHOLECALCIFEROL
  2. ALENDRONATE SODIUM TABLETS, USP [Suspect]
     Active Substance: ALENDRONATE SODIUM
     Indication: OSTEOPOROSIS
     Route: 048
     Dates: start: 201605, end: 20160918
  3. OMEPRAZOLE. [Concomitant]
     Active Substance: OMEPRAZOLE
  4. FISH OIL [Concomitant]
     Active Substance: FISH OIL
  5. CITRACAL (CATT) [Concomitant]
  6. LOW DOSE ASPIRIN [Concomitant]
     Active Substance: ASPIRIN
  7. LOVASTATIN. [Concomitant]
     Active Substance: LOVASTATIN
  8. ACETAMINOPHEN. [Concomitant]
     Active Substance: ACETAMINOPHEN
  9. LACTULOSE. [Concomitant]
     Active Substance: LACTULOSE
  10. IRON [Concomitant]
     Active Substance: IRON

REACTIONS (4)
  - Muscular weakness [None]
  - Fatigue [None]
  - Arthralgia [None]
  - Pain in extremity [None]

NARRATIVE: CASE EVENT DATE: 20160920
